FAERS Safety Report 4692849-5 (Version None)
Quarter: 2005Q2

REPORT INFORMATION
  Report Type: 
  Country: None (occurrence: None)
  Receive Date: 20050617
  Receipt Date: 20050607
  Transmission Date: 20051028
  Serious: Yes (Hospitalization, Other)
  Sender: FDA-Public Use
  Company Number: US-MERCK-0506USA01284

PATIENT
  Age: 51 Year
  Sex: Female

DRUGS (2)
  1. ALDOMET [Suspect]
     Route: 048
  2. LABETALOL HYDROCHLORIDE [Suspect]
     Route: 065

REACTIONS (7)
  - HEPATIC ENCEPHALOPATHY [None]
  - HEPATIC FAILURE [None]
  - HEPATIC NECROSIS [None]
  - HEPATITIS [None]
  - HEPATITIS ACUTE [None]
  - HEPATORENAL SYNDROME [None]
  - HYPERTENSION [None]
